FAERS Safety Report 4267353-9 (Version None)
Quarter: 2004Q1

REPORT INFORMATION
  Report Type: 
  Country: None (occurrence: None)
  Receive Date: 20040107
  Receipt Date: 20031221
  Transmission Date: 20041129
  Serious: Yes (Other)
  Sender: FDA-Public Use
  Company Number: MEDI-0001159

PATIENT
  Age: 2 Month
  Sex: Male
  Weight: 2.47 kg

DRUGS (4)
  1. SYNAGIS [Suspect]
     Indication: ANTIVIRAL PROPHYLAXIS
     Dosage: 1 IN 30 D, INTRA-MUSCULAR
     Route: 030
     Dates: start: 20031017, end: 20031017
  2. SYNAGIS [Suspect]
     Indication: ANTIVIRAL PROPHYLAXIS
     Dosage: 1 IN 30 D, INTRA-MUSCULAR
     Route: 030
     Dates: start: 20031120
  3. FERROUS [Concomitant]
     Route: 048
  4. HEPATITIS B VACCINE (HEPATITIS B VACCINE) [Concomitant]

REACTIONS (1)
  - THROMBOCYTOPENIA [None]
